FAERS Safety Report 24981441 (Version 1)
Quarter: 2025Q1

REPORT INFORMATION
  Report Type: Spontaneous
  Country: JP (occurrence: JP)
  Receive Date: 20250218
  Receipt Date: 20250218
  Transmission Date: 20250408
  Serious: Yes (Other)
  Sender: FERRING
  Company Number: JP-ferring-EVA202500204FERRINGPH

PATIENT

DRUGS (2)
  1. DEGARELIX [Suspect]
     Active Substance: DEGARELIX
     Indication: Prostate cancer metastatic
     Route: 065
  2. BICALUTAMIDE [Suspect]
     Active Substance: BICALUTAMIDE
     Indication: Prostate cancer metastatic
     Route: 065

REACTIONS (1)
  - Interstitial lung disease [Recovered/Resolved]
